FAERS Safety Report 8719932 (Version 2)
Quarter: 2012Q4

REPORT INFORMATION
  Report Type: 
  Country: JP (occurrence: JP)
  Receive Date: 20120813
  Receipt Date: 20120830
  Transmission Date: 20130627
  Serious: Yes (Hospitalization)
  Sender: FDA-Public Use
  Company Number: JP-NOVOPROD-354625

PATIENT
  Age: 81 Year
  Sex: Male

DRUGS (7)
  1. REPAGLINIDE [Suspect]
     Indication: DIABETES MELLITUS
     Dosage: 1.5 mg, tid
     Route: 048
     Dates: start: 20120530, end: 20120618
  2. PERSANTIN-L [Concomitant]
     Indication: CEREBRAL INFARCTION
     Route: 048
  3. BAYASPIRIN [Concomitant]
     Indication: CEREBRAL INFARCTION
     Route: 048
  4. MEVALOTIN [Concomitant]
     Indication: HYPERLIPIDAEMIA
     Route: 048
  5. TAKEPRON [Concomitant]
     Indication: GASTROOESOPHAGEAL REFLUX DISEASE
     Route: 048
  6. ROCALTROL [Concomitant]
     Indication: HYPERPARATHYROIDISM SECONDARY
     Route: 048
  7. WARFARIN [Concomitant]
     Indication: ATRIAL FIBRILLATION
     Dosage: UNK
     Route: 048

REACTIONS (2)
  - Ileus paralytic [Recovered/Resolved]
  - Hypoglycaemia [Recovering/Resolving]
